FAERS Safety Report 22022830 (Version 1)
Quarter: 2023Q1

REPORT INFORMATION
  Report Type: Report from Study
  Country: US (occurrence: US)
  Receive Date: 20230222
  Receipt Date: 20230222
  Transmission Date: 20230418
  Serious: Yes (Other)
  Sender: FDA-Public Use
  Company Number: US-BAYER-2023A016769

PATIENT
  Age: 57 Year
  Sex: Female

DRUGS (1)
  1. STIVARGA [Suspect]
     Active Substance: REGORAFENIB
     Indication: Colorectal cancer
     Dosage: 120 MG, QD FOR THREE WEEKS ON AND ONE WEEK OFF
     Route: 048
     Dates: start: 20230203

REACTIONS (9)
  - Dizziness [Unknown]
  - Bedridden [Unknown]
  - Nervousness [Unknown]
  - Asthenia [Unknown]
  - Pyrexia [Unknown]
  - Cold sweat [Unknown]
  - Constipation [Unknown]
  - Blood glucose increased [Unknown]
  - Off label use [None]

NARRATIVE: CASE EVENT DATE: 20230203
